FAERS Safety Report 4830517-7 (Version None)
Quarter: 2005Q4

REPORT INFORMATION
  Report Type: 
  Country: None (occurrence: None)
  Receive Date: 20051115
  Receipt Date: 20051110
  Transmission Date: 20060501
  Serious: Yes (Hospitalization)
  Sender: FDA-Public Use
  Company Number: TCI2005A04337

PATIENT
  Age: 40 Year
  Sex: Female

DRUGS (1)
  1. LEUPROLIDE ACETATE [Suspect]
     Indication: UTERINE LEIOMYOMA
     Dosage: 3.75 MG (3.75 MG, 1 IN 1 28 D) SUBCUTANEOUS
     Route: 058
     Dates: start: 20031224, end: 20040217

REACTIONS (1)
  - MULTIPLE SCLEROSIS RELAPSE [None]
